FAERS Safety Report 24297382 (Version 1)
Quarter: 2024Q3

REPORT INFORMATION
  Report Type: Spontaneous
  Country: US (occurrence: None)
  Receive Date: 20240906
  Receipt Date: 20240906
  Transmission Date: 20241016
  Serious: Yes (Death)
  Sender: Public
  Company Number: None

PATIENT
  Age: 57 Year
  Sex: Male
  Weight: 70.81 kg

DRUGS (1)
  1. AJOVY [Suspect]
     Active Substance: FREMANEZUMAB-VFRM
     Indication: Migraine
     Dosage: ?MONTHLY SUBCUTANEOUS
     Route: 058
     Dates: start: 20210923, end: 20240809

REACTIONS (1)
  - Death [None]

NARRATIVE: CASE EVENT DATE: 20240816
